FAERS Safety Report 8928687 (Version 1)
Quarter: 2012Q4

REPORT INFORMATION
  Report Type: Spontaneous
  Country: US (occurrence: None)
  Receive Date: 20121126
  Receipt Date: 20121126
  Transmission Date: 20130627
  Serious: Yes (Other)
  Sender: FDA-Public Use
  Company Number: None

PATIENT
  Age: 48 Year
  Sex: Female
  Weight: 56.7 kg

DRUGS (1)
  1. XANAX [Suspect]
     Indication: ANXIETY
     Dosage: 1 tablet   3x/day   po
     Route: 048
     Dates: start: 20121109, end: 20121115

REACTIONS (8)
  - Heart rate increased [None]
  - Agitation [None]
  - Hostility [None]
  - Suicidal ideation [None]
  - Irritability [None]
  - Product formulation issue [None]
  - Product quality issue [None]
  - Product substitution issue [None]
